FAERS Safety Report 4325246-2 (Version None)
Quarter: 2004Q1

REPORT INFORMATION
  Report Type: 
  Country: None (occurrence: None)
  Receive Date: 20040324
  Receipt Date: 20040312
  Transmission Date: 20041129
  Serious: Yes (Disabling)
  Sender: FDA-Public Use
  Company Number: 2004203929GB

PATIENT
  Age: 38 Year
  Sex: Male
  Weight: 60 kg

DRUGS (1)
  1. CELEBREX [Suspect]
     Indication: PAIN
     Dosage: 400 MG, QD, ORAL
     Route: 048
     Dates: start: 20030407, end: 20040304

REACTIONS (4)
  - MUSCLE CRAMP [None]
  - PLEURITIC PAIN [None]
  - RASH PUSTULAR [None]
  - VIRAL PERICARDITIS [None]
